FAERS Safety Report 8547826-0 (Version None)
Quarter: 2012Q3

REPORT INFORMATION
  Report Type: 
  Country: None (occurrence: None)
  Receive Date: 20120727
  Receipt Date: 20120314
  Transmission Date: 20120928
  Serious: Yes (Other)
  Sender: FDA-Public Use
  Company Number: US-ASTRAZENECA-2012SE12424

PATIENT
  Age: 52 Year
  Sex: Female
  Weight: 54.4 kg

DRUGS (12)
  1. TRAZODONE HYDROCHLORIDE [Concomitant]
  2. SEROQUEL XR [Suspect]
     Route: 048
     Dates: start: 20111001
  3. VICODIN [Concomitant]
     Indication: PAIN PROPHYLAXIS
  4. SOMA [Concomitant]
     Indication: PAIN PROPHYLAXIS
  5. SEROQUEL XR [Suspect]
     Indication: BIPOLAR DISORDER
     Route: 048
  6. SEROQUEL XR [Suspect]
     Indication: ANXIETY
     Route: 048
  7. SEROQUEL XR [Suspect]
     Route: 048
     Dates: start: 20111001
  8. SEROQUEL XR [Suspect]
     Route: 048
     Dates: start: 20111001
  9. VALIUM [Concomitant]
     Indication: SLEEP DISORDER
  10. SEROQUEL XR [Suspect]
     Indication: MANIA
     Route: 048
  11. LITHIUM CARBONATE [Concomitant]
  12. OXYCODEINE [Concomitant]
     Indication: PAIN PROPHYLAXIS

REACTIONS (14)
  - BACK PAIN [None]
  - BOWEL MOVEMENT IRREGULARITY [None]
  - CRYING [None]
  - CONSTIPATION [None]
  - THIRST [None]
  - FEELING JITTERY [None]
  - ADVERSE EVENT [None]
  - MEMORY IMPAIRMENT [None]
  - DRUG DOSE OMISSION [None]
  - SUICIDAL IDEATION [None]
  - NECK PAIN [None]
  - AGORAPHOBIA [None]
  - INSOMNIA [None]
  - DRY MOUTH [None]
